FAERS Safety Report 6634426-2 (Version None)
Quarter: 2010Q1

REPORT INFORMATION
  Report Type: 
  Country: None (occurrence: None)
  Receive Date: 20100315
  Receipt Date: 20100302
  Transmission Date: 20100710
  Serious: Yes (Hospitalization, Other)
  Sender: FDA-Public Use
  Company Number: DE-ROCHE-689870

PATIENT
  Age: 37 Year
  Sex: Male
  Weight: 75 kg

DRUGS (9)
  1. VALGANCICLOVIR HCL [Suspect]
     Route: 065
     Dates: end: 20070516
  2. CYCLOSPORINE [Suspect]
     Indication: DRUG USE FOR UNKNOWN INDICATION
     Dosage: TDD: 2X125 MG
     Route: 065
     Dates: end: 20070601
  3. MYCOPHENOLATE MOFETIL [Concomitant]
     Dosage: TDD: 2X1G
  4. PREDNISOLONE [Concomitant]
  5. AMLODIPINE [Concomitant]
  6. METOPROLOL [Concomitant]
  7. ESOMEPRAZOLE [Concomitant]
  8. DOXORUBICIN [Concomitant]
     Dosage: TDD: 2X0.3MG
  9. CANDESARTAN/HYDROCHLOROTHIAZIDE [Concomitant]

REACTIONS (2)
  - BLOOD CREATININE INCREASED [None]
  - HAEMOGLOBIN INCREASED [None]
